FAERS Safety Report 16380159 (Version 1)
Quarter: 2019Q2

REPORT INFORMATION
  Report Type: Spontaneous
  Country: US (occurrence: US)
  Receive Date: 20190601
  Receipt Date: 20190601
  Transmission Date: 20190711
  Serious: No
  Sender: FDA-Public Use
  Company Number: US-AUROBINDO-AUR-APL-2018-026686

PATIENT
  Age: 87 Year
  Sex: Female
  Weight: 72 kg

DRUGS (2)
  1. HYDROCODONE BITARTRATE AND ACETAMINOPHEN TABLETS USP 7.5 MG/325 MG [Suspect]
     Active Substance: ACETAMINOPHEN\HYDROCODONE BITARTRATE
     Indication: INTERVERTEBRAL DISC DEGENERATION
  2. HYDROCODONE BITARTRATE AND ACETAMINOPHEN TABLETS USP 7.5 MG/325 MG [Suspect]
     Active Substance: ACETAMINOPHEN\HYDROCODONE BITARTRATE
     Indication: ARTHRITIS
     Dosage: (01 TABLET AFTER EVERY 6 HOURS) OR SOME LIMES 3 TABLETS A DAY.
     Route: 065
     Dates: start: 20180513

REACTIONS (1)
  - Peripheral swelling [Not Recovered/Not Resolved]
